FAERS Safety Report 21265273 (Version 2)
Quarter: 2022Q4

REPORT INFORMATION
  Report Type: Spontaneous
  Country: US (occurrence: US)
  Receive Date: 20220829
  Receipt Date: 20221123
  Transmission Date: 20230113
  Serious: Yes (Hospitalization, Other)
  Sender: FDA-Public Use
  Company Number: US-ALKERMES INC.-ALK-2022-004085

PATIENT
  Age: 32 Year
  Sex: Female
  Weight: 67.574 kg

DRUGS (5)
  1. VIVITROL [Suspect]
     Active Substance: NALTREXONE
     Indication: Alcoholism
     Dosage: 380 MILLIGRAM, Q4WK
     Route: 030
     Dates: start: 20220510, end: 20220802
  2. VIVITROL [Suspect]
     Active Substance: NALTREXONE
     Indication: Alcohol use disorder
  3. DISULFIRAM [Concomitant]
     Active Substance: DISULFIRAM
     Indication: Alcohol use disorder
     Dosage: 250 MILLIGRAM, QD
     Route: 048
     Dates: start: 20211220, end: 20220906
  4. HYDROXYZINE [Concomitant]
     Active Substance: HYDROXYZINE HYDROCHLORIDE
     Indication: Anxiety
     Dosage: 25 MILLIGRAM, TID, AS NEEDED
     Route: 048
     Dates: start: 20220630
  5. FLUOXETINE [Concomitant]
     Active Substance: FLUOXETINE HYDROCHLORIDE
     Indication: Anxiety
     Dosage: 60 MILLIGRAM, QD
     Route: 048
     Dates: start: 20220630

REACTIONS (2)
  - Injection site abscess [Recovered/Resolved]
  - Injection site reaction [Recovered/Resolved]

NARRATIVE: CASE EVENT DATE: 20220805
